FAERS Safety Report 5100574-1 (Version None)
Quarter: 2006Q3

REPORT INFORMATION
  Report Type: 
  Country: None (occurrence: None)
  Receive Date: 20060907
  Receipt Date: 20060907
  Transmission Date: 20061208
  Serious: Yes (Death)
  Sender: FDA-Public Use
  Company Number: None

PATIENT
  Age: 55 Year
  Sex: Male
  Weight: 54.8852 kg

DRUGS (2)
  1. OXAPLATIN [Suspect]
     Indication: NEOPLASM MALIGNANT
     Dosage: 130 MG/ML Q 21 DAYS
     Dates: start: 20060808
  2. DOCETAXEL [Suspect]
     Indication: NEOPLASM MALIGNANT
     Dosage: 60 MG/M2 Q 21 DAYS
     Dates: start: 20060808

REACTIONS (8)
  - FEBRILE NEUTROPENIA [None]
  - GENERAL PHYSICAL HEALTH DETERIORATION [None]
  - INFECTION [None]
  - INFLAMMATION [None]
  - MALIGNANT NEOPLASM PROGRESSION [None]
  - OBSTRUCTIVE AIRWAYS DISORDER [None]
  - OROPHARYNGEAL CANCER STAGE UNSPECIFIED [None]
  - RESPIRATORY FAILURE [None]
